FAERS Safety Report 12788519 (Version 3)
Quarter: 2016Q4

REPORT INFORMATION
  Report Type: Spontaneous
  Country: FR (occurrence: FR)
  Receive Date: 20160928
  Receipt Date: 20161107
  Transmission Date: 20170207
  Serious: Yes (Other)
  Sender: FDA-Public Use
  Company Number: FR-UCBSA-2016036802

PATIENT
  Sex: Male

DRUGS (3)
  1. NEUPRO [Suspect]
     Active Substance: ROTIGOTINE
     Indication: RESTLESS LEGS SYNDROME
     Dosage: A HALF PATCH OF 2 MG
  2. NEUPRO [Suspect]
     Active Substance: ROTIGOTINE
     Dosage: ONE PATCH OF 2 MG
  3. NEUPRO [Suspect]
     Active Substance: ROTIGOTINE
     Dosage: 2 PATCH A DAY (2 MG PATCH)

REACTIONS (4)
  - Age-related macular degeneration [Not Recovered/Not Resolved]
  - Overdose [Unknown]
  - Off label use [Unknown]
  - Intentional product misuse [Unknown]
